FAERS Safety Report 14444516 (Version 1)
Quarter: 2018Q1

REPORT INFORMATION
  Report Type: Spontaneous
  Country: US (occurrence: US)
  Receive Date: 20180125
  Receipt Date: 20180125
  Transmission Date: 20180509
  Serious: Yes (Hospitalization, Other)
  Sender: FDA-Public Use
  Company Number: None

PATIENT
  Sex: Male
  Weight: 78.75 kg

DRUGS (8)
  1. OCREVUS [Suspect]
     Active Substance: OCRELIZUMAB
     Indication: PRIMARY PROGRESSIVE MULTIPLE SCLEROSIS
     Dosage: ?          QUANTITY:1 INFUSION;OTHER FREQUENCY:1ST 1/2 300 MILILI;?
     Route: 058
     Dates: start: 20180119, end: 20180121
  2. WALKER SEAT [Concomitant]
     Active Substance: DEVICE
  3. CANE [Concomitant]
  4. MULTI VITAMIN [Concomitant]
     Active Substance: VITAMINS
  5. BACLOFEN. [Concomitant]
     Active Substance: BACLOFEN
  6. VITAMIN D [Concomitant]
     Active Substance: CHOLECALCIFEROL
  7. SHOWER BENCH [Concomitant]
  8. KAPPRA [Concomitant]

REACTIONS (11)
  - Hyperhidrosis [None]
  - Fall [None]
  - Vomiting [None]
  - Musculoskeletal stiffness [None]
  - Cough [None]
  - Seizure [None]
  - Nausea [None]
  - Malaise [None]
  - Loss of consciousness [None]
  - Head injury [None]
  - Amnesia [None]

NARRATIVE: CASE EVENT DATE: 20180121
